FAERS Safety Report 23417432 (Version 3)
Quarter: 2024Q1

REPORT INFORMATION
  Report Type: Report from Study
  Country: US (occurrence: US)
  Receive Date: 20240118
  Receipt Date: 20240312
  Transmission Date: 20240410
  Serious: Yes (Other)
  Sender: FDA-Public Use
  Company Number: US-ABBVIE-5588029

PATIENT
  Sex: Female

DRUGS (3)
  1. RINVOQ [Suspect]
     Active Substance: UPADACITINIB
     Indication: Rheumatoid arthritis
     Route: 048
  2. RINVOQ [Suspect]
     Active Substance: UPADACITINIB
     Indication: Rheumatoid arthritis
     Dosage: STOPPED IN 2024
     Route: 048
     Dates: start: 20240208
  3. RINVOQ [Suspect]
     Active Substance: UPADACITINIB
     Indication: Rheumatoid arthritis
     Route: 048
     Dates: start: 20230308

REACTIONS (5)
  - Carpal tunnel syndrome [Recovering/Resolving]
  - Therapeutic product effect incomplete [Recovered/Resolved]
  - Rheumatoid arthritis [Unknown]
  - Impaired healing [Unknown]
  - Trigger finger [Recovering/Resolving]
